FAERS Safety Report 9392670 (Version 1)
Quarter: 2013Q3

REPORT INFORMATION
  Report Type: Spontaneous
  Country: FR (occurrence: FR)
  Receive Date: 20130710
  Receipt Date: 20130710
  Transmission Date: 20140515
  Serious: Yes (Other)
  Sender: FDA-Public Use
  Company Number: PHHY2013FR032098

PATIENT
  Age: 73 Year
  Sex: Male
  Weight: 110 kg

DRUGS (3)
  1. ONBREZ [Suspect]
     Indication: CHRONIC OBSTRUCTIVE PULMONARY DISEASE
     Dosage: 150 UG, QD
     Route: 048
     Dates: start: 20121227, end: 20130303
  2. ZITHROMAX [Concomitant]
     Indication: LUNG INFECTION
     Route: 048
     Dates: start: 20121227, end: 20121231
  3. EUPRESSYL [Concomitant]
     Indication: HYPERTENSION
     Dosage: 60 MG, BID
     Route: 048
     Dates: start: 2010

REACTIONS (1)
  - Somnolence [Recovered/Resolved]
